FAERS Safety Report 10056516 (Version 2)
Quarter: 2014Q2

REPORT INFORMATION
  Report Type: Spontaneous
  Country: JP (occurrence: JP)
  Receive Date: 20140403
  Receipt Date: 20140416
  Transmission Date: 20141212
  Serious: Yes (Hospitalization, Other)
  Sender: FDA-Public Use
  Company Number: JP-PFIZER INC-2014092085

PATIENT
  Age: 59 Year
  Sex: Male
  Weight: 63 kg

DRUGS (7)
  1. RHEUMATREX [Suspect]
     Indication: RHEUMATOID ARTHRITIS
     Dosage: 2 MG, 2X/WEEK
     Route: 048
     Dates: start: 20050530
  2. RHEUMATREX [Suspect]
     Dosage: 2MG, 3X/WEEK
     Route: 048
     Dates: start: 20061114
  3. RHEUMATREX [Suspect]
     Dosage: 2 MG, 4X/WEEK
     Route: 048
     Dates: start: 20070206
  4. RHEUMATREX [Suspect]
     Dosage: 12 MG, WEEKLY
     Route: 048
     Dates: start: 20070522
  5. RHEUMATREX [Suspect]
     Dosage: 16 MG, WEEKLY
     Dates: start: 20090428, end: 20121031
  6. AZULFIDINE EN [Suspect]
     Indication: RHEUMATOID ARTHRITIS
     Dosage: 500 MG, 2X/DAY
     Route: 048
     Dates: start: 20050510, end: 20121106
  7. PREDONINE [Concomitant]
     Dosage: BETWEEN 1.25 MG/DAY AND 5 MG/DAY
     Dates: start: 20050524, end: 20110524

REACTIONS (3)
  - Monoplegia [Recovering/Resolving]
  - Mass [Recovering/Resolving]
  - Interstitial lung disease [Unknown]
